FAERS Safety Report 10174900 (Version 1)
Quarter: 2014Q2

REPORT INFORMATION
  Report Type: Spontaneous
  Country: FI (occurrence: FI)
  Receive Date: 20140515
  Receipt Date: 20140515
  Transmission Date: 20141212
  Serious: Yes (Other)
  Sender: FDA-Public Use
  Company Number: FI-ABBVIE-14P-055-1233137-00

PATIENT
  Sex: Female

DRUGS (2)
  1. DEPAKINE [Suspect]
     Indication: EPILEPSY
     Dosage: TWO TABLETS TWICE PER DAY IN THE MORNING AND IN THE EVENING
  2. DEPAKINE [Suspect]
     Dosage: 500MG+500MG+1000MG

REACTIONS (3)
  - Pre-eclampsia [Unknown]
  - Convulsion [Unknown]
  - Suppressed lactation [Unknown]
